FAERS Safety Report 26090012 (Version 1)
Quarter: 2025Q4

REPORT INFORMATION
  Report Type: Spontaneous
  Country: US (occurrence: US)
  Receive Date: 20251126
  Receipt Date: 20251126
  Transmission Date: 20260118
  Serious: Yes (Hospitalization, Other)
  Sender: ROCHE
  Company Number: US-ROCHE-10000437765

PATIENT
  Sex: Male

DRUGS (6)
  1. VABYSMO [Suspect]
     Active Substance: FARICIMAB-SVOA
     Indication: Retinal vein occlusion
     Route: 050
     Dates: start: 202506
  2. VABYSMO [Suspect]
     Active Substance: FARICIMAB-SVOA
  3. VABYSMO [Suspect]
     Active Substance: FARICIMAB-SVOA
  4. VABYSMO [Suspect]
     Active Substance: FARICIMAB-SVOA
  5. ASPIRIN [Concomitant]
     Active Substance: ASPIRIN
  6. VITAMINS [Concomitant]
     Active Substance: VITAMINS

REACTIONS (6)
  - Transient ischaemic attack [Unknown]
  - Concussion [Unknown]
  - Seizure [Unknown]
  - Off label use [Unknown]
  - Aphasia [Recovered/Resolved]
  - Blindness [Unknown]

NARRATIVE: CASE EVENT DATE: 20251001
